FAERS Safety Report 16822261 (Version 7)
Quarter: 2020Q1

REPORT INFORMATION
  Report Type: Spontaneous
  Country: US (occurrence: US)
  Receive Date: 20190918
  Receipt Date: 20200224
  Transmission Date: 20200409
  Serious: Yes (Hospitalization)
  Sender: FDA-Public Use
  Company Number: US-PFIZER INC-2019399879

PATIENT
  Age: 64 Year
  Sex: Female

DRUGS (1)
  1. LYRICA [Suspect]
     Active Substance: PREGABALIN
     Indication: INTERVERTEBRAL DISC DISPLACEMENT
     Dosage: 100 MG, TWICE A DAY
     Route: 048

REACTIONS (4)
  - Pain [Unknown]
  - Malaise [Unknown]
  - Withdrawal syndrome [Unknown]
  - Laryngitis [Unknown]
